FAERS Safety Report 12990813 (Version 2)
Quarter: 2020Q3

REPORT INFORMATION
  Report Type: Spontaneous
  Country: US (occurrence: US)
  Receive Date: 20161201
  Receipt Date: 20200924
  Transmission Date: 20201102
  Serious: Yes (Death, Hospitalization)
  Sender: FDA-Public Use
  Company Number: US-JNJFOC-20161114934

PATIENT
  Age: 51 Year
  Sex: Male
  Weight: 74.84 kg

DRUGS (9)
  1. WARFARIN [Suspect]
     Active Substance: WARFARIN
     Dosage: HALF TABLET BY MOUTH EVERY DAY (EXCEPT 1 TABLET TWICE IN WEAK)
     Route: 048
     Dates: start: 20140618
  2. WARFARIN [Suspect]
     Active Substance: WARFARIN
     Dosage: HALF TABLET BY MOUTH EVERY DAY (EXCEPT 1 TABLET ONCE IN WEAK)
     Route: 048
     Dates: start: 20131024
  3. LOVENOX [Suspect]
     Active Substance: ENOXAPARIN SODIUM
     Dosage: 60 MG/ 0.6 ML
     Route: 058
     Dates: start: 20140618
  4. XARELTO [Suspect]
     Active Substance: RIVAROXABAN
     Indication: DEEP VEIN THROMBOSIS
     Route: 048
     Dates: end: 20140813
  5. WARFARIN [Suspect]
     Active Substance: WARFARIN
     Indication: PRODUCT USED FOR UNKNOWN INDICATION
     Route: 048
     Dates: start: 20130715, end: 20140716
  6. XARELTO [Suspect]
     Active Substance: RIVAROXABAN
     Indication: PULMONARY EMBOLISM
     Route: 048
     Dates: start: 20140710
  7. XARELTO [Suspect]
     Active Substance: RIVAROXABAN
     Route: 048
     Dates: start: 20140619
  8. LOVENOX [Suspect]
     Active Substance: ENOXAPARIN SODIUM
     Indication: PRODUCT USED FOR UNKNOWN INDICATION
     Dosage: 60 MG/ 0.6 ML
     Route: 058
     Dates: start: 20140611
  9. WARFARIN [Suspect]
     Active Substance: WARFARIN
     Dosage: HALF TABLET BY MOUTH EVERY DAY (EXCEPT 1 TABLET TWICE IN WEAK)
     Route: 048
     Dates: start: 20131121

REACTIONS (3)
  - Multiple injuries [Fatal]
  - Subdural haemorrhage [Fatal]
  - Subarachnoid haemorrhage [Fatal]

NARRATIVE: CASE EVENT DATE: 20140813
